FAERS Safety Report 4733786-7 (Version None)
Quarter: 2005Q3

REPORT INFORMATION
  Report Type: 
  Country: None (occurrence: None)
  Receive Date: 20050729
  Receipt Date: 20050615
  Transmission Date: 20060218
  Serious: No
  Sender: FDA-Public Use
  Company Number: MK200506-0192-1

PATIENT
  Age: 70 Year
  Sex: Female

DRUGS (1)
  1. NEUTROSPEC [Suspect]
     Indication: ABSCESS
     Dosage: 16.2 MCI, ONE TIME, IV
     Route: 042
     Dates: start: 20050609, end: 20050609

REACTIONS (6)
  - CHEST DISCOMFORT [None]
  - CHILLS [None]
  - DYSPNOEA [None]
  - HYPOAESTHESIA [None]
  - NAUSEA [None]
  - TREMOR [None]
